FAERS Safety Report 21364492 (Version 1)
Quarter: 2022Q3

REPORT INFORMATION
  Report Type: Spontaneous
  Country: CN (occurrence: CN)
  Receive Date: 20220922
  Receipt Date: 20220922
  Transmission Date: 20221026
  Serious: Yes (Other)
  Sender: FDA-Public Use
  Company Number: CN-SLATE RUN PHARMACEUTICALS-22CN001329

PATIENT

DRUGS (5)
  1. METOPROLOL SUCCINATE [Suspect]
     Active Substance: METOPROLOL SUCCINATE
     Indication: Cardiac failure
     Dosage: 11.875 MILLIGRAM, QD
  2. METHIMAZOLE [Concomitant]
     Active Substance: METHIMAZOLE
     Indication: Cardiac failure
     Dosage: 7.5 MILLIGRAM, QD
  3. METHIMAZOLE [Concomitant]
     Active Substance: METHIMAZOLE
     Dosage: 7.5 MILLIGRAM, QD
  4. FUROSEMIDE [Concomitant]
     Active Substance: FUROSEMIDE
     Indication: Cardiac failure
     Dosage: 20 MILLIGRAM, QD
  5. SPIRONOLACTONE [Concomitant]
     Active Substance: SPIRONOLACTONE
     Indication: Cardiac failure
     Dosage: 20 MILLIGRAM, QD

REACTIONS (9)
  - Cardiac murmur [Unknown]
  - Treatment failure [Recovered/Resolved]
  - Atrial fibrillation [Recovered/Resolved]
  - Rales [Unknown]
  - Cardiomegaly [Unknown]
  - Pulmonary oedema [Unknown]
  - Pleural effusion [Unknown]
  - Cardiac failure chronic [Recovering/Resolving]
  - Oedema peripheral [Unknown]
